FAERS Safety Report 21354709 (Version 2)
Quarter: 2023Q4

REPORT INFORMATION
  Report Type: Spontaneous
  Country: DE (occurrence: DE)
  Receive Date: 20220920
  Receipt Date: 20231110
  Transmission Date: 20240109
  Serious: Yes (Hospitalization, Other)
  Sender: FDA-Public Use
  Company Number: DE-002147023-PHHY2019DE129976

PATIENT
  Sex: Male
  Weight: 107 kg

DRUGS (9)
  1. IBUPROFEN [Suspect]
     Active Substance: IBUPROFEN
     Indication: Product used for unknown indication
     Dosage: UNK
     Route: 065
  2. VALSARTAN [Suspect]
     Active Substance: VALSARTAN
     Indication: Essential hypertension
     Dosage: 160 MG, QD
     Route: 065
     Dates: start: 2015, end: 2018
  3. VALSARTAN [Suspect]
     Active Substance: VALSARTAN
     Indication: Essential hypertension
     Dosage: 160 MG, QD (DAILY IN THE MORNING)
     Route: 065
     Dates: start: 20141015, end: 201902
  4. VALSARTAN [Suspect]
     Active Substance: VALSARTAN
     Dosage: 80 MG, QD (DAILY IN THE MORNING)
     Route: 065
  5. VALSARTAN [Concomitant]
     Active Substance: VALSARTAN
     Indication: Hypertension
     Dosage: 160 MG
     Route: 065
     Dates: start: 201902
  6. NITRENDIPINE [Concomitant]
     Active Substance: NITRENDIPINE
     Indication: Product used for unknown indication
     Dosage: UNK
     Route: 048
  7. BISOPROLOL [Concomitant]
     Active Substance: BISOPROLOL\BISOPROLOL FUMARATE
     Indication: Product used for unknown indication
     Dosage: 5 MG. N3
     Route: 065
  8. CIPRO [Concomitant]
     Active Substance: CIPROFLOXACIN HYDROCHLORIDE
     Indication: Product used for unknown indication
     Dosage: 250 MG
     Route: 065
  9. CIPRO [Concomitant]
     Active Substance: CIPROFLOXACIN HYDROCHLORIDE
     Dosage: 500 MG
     Route: 065

REACTIONS (28)
  - Lymphadenopathy [Unknown]
  - Middle lobe syndrome [Unknown]
  - Hilar lymphadenopathy [Recovering/Resolving]
  - Pulmonary granuloma [Unknown]
  - Pulmonary mass [Unknown]
  - Osteochondrosis [Unknown]
  - Brain injury [Unknown]
  - Hypothyroidism [Unknown]
  - Hernia [Unknown]
  - Neoplasm malignant [Unknown]
  - Gastrointestinal neoplasm [Unknown]
  - Emotional distress [Unknown]
  - Insomnia [Unknown]
  - Flatulence [Unknown]
  - Skin mass [Unknown]
  - Chilaiditi^s syndrome [Unknown]
  - Rib fracture [Unknown]
  - Liver disorder [Unknown]
  - Fear [Unknown]
  - Paranasal cyst [Unknown]
  - Oedema mucosal [Unknown]
  - Obesity [Unknown]
  - Hypertrophy [Unknown]
  - Mental disorder [Unknown]
  - General physical health deterioration [Unknown]
  - Nausea [Unknown]
  - Headache [Unknown]
  - Drug hypersensitivity [Unknown]

NARRATIVE: CASE EVENT DATE: 20150401
